FAERS Safety Report 9767639 (Version 1)
Quarter: 2013Q4

REPORT INFORMATION
  Report Type: Spontaneous
  Country: US (occurrence: None)
  Receive Date: 20131213
  Receipt Date: 20131213
  Transmission Date: 20140711
  Serious: Yes (Other)
  Sender: FDA-Public Use
  Company Number: 2013SA027542

PATIENT
  Age: 24 Year
  Sex: Female

DRUGS (1)
  1. CAPSAICIN [Suspect]
     Indication: PRODUCT USED FOR UNKNOWN INDICATION
     Dates: start: 20110106

REACTIONS (4)
  - Application site burn [None]
  - Urticaria [None]
  - Blister [None]
  - Burns second degree [None]
